FAERS Safety Report 17855592 (Version 2)
Quarter: 2020Q2

REPORT INFORMATION
  Report Type: Spontaneous
  Country: CZ (occurrence: CZ)
  Receive Date: 20200603
  Receipt Date: 20200618
  Transmission Date: 20200714
  Serious: Yes (Other)
  Sender: FDA-Public Use
  Company Number: CZ-MYLANLABS-2020M1050491

PATIENT
  Age: 64 Year
  Sex: Female

DRUGS (7)
  1. PACLITAXEL. [Suspect]
     Active Substance: PACLITAXEL
     Dosage: UNK
     Dates: start: 201905, end: 201909
  2. CARBOPLATIN. [Suspect]
     Active Substance: CARBOPLATIN
     Dosage: UNK
     Dates: start: 201905, end: 201909
  3. CARBOPLATIN. [Suspect]
     Active Substance: CARBOPLATIN
     Dosage: REPEATING CYCLE AFTER 21 DAYS. A TOTAL OF SIX SERIES OF THIS CHEMOTHERAPY WERE ADMINISTERED
     Route: 042
     Dates: start: 201905, end: 201909
  4. GABAPENTIN. [Concomitant]
     Active Substance: GABAPENTIN
     Indication: PROPHYLAXIS
     Dosage: REDUCED TO 900 MG DAILY
  5. PACLITAXEL. [Suspect]
     Active Substance: PACLITAXEL
     Indication: UTERINE CANCER
     Dosage: 1 UNK, Q21D (6 CYCLES)
     Route: 042
     Dates: start: 201905
  6. PACLITAXEL. [Suspect]
     Active Substance: PACLITAXEL
     Dosage: REPEATING CYCLE AFTER 21 DAYS. A TOTAL OF SIX SERIES OF THIS CHEMOTHERAPY WERE ADMINISTERED
     Route: 042
     Dates: start: 201905, end: 201909
  7. CARBOPLATIN. [Suspect]
     Active Substance: CARBOPLATIN
     Indication: UTERINE CANCER
     Dosage: 1 UNK, Q21D (6 CYCLES)
     Route: 042
     Dates: start: 201905

REACTIONS (7)
  - Insomnia [Unknown]
  - Depression [Unknown]
  - Neuropathy peripheral [Unknown]
  - Off label use [Unknown]
  - Restless legs syndrome [Unknown]
  - Fatigue [Unknown]
  - Neuralgia [Recovered/Resolved]
